FAERS Safety Report 8088701-8 (Version None)
Quarter: 2012Q1

REPORT INFORMATION
  Report Type: 
  Country: None (occurrence: None)
  Receive Date: 20120128
  Receipt Date: 20110607
  Transmission Date: 20120608
  Serious: No
  Sender: FDA-Public Use
  Company Number: US-ABBOTT-11P-163-0730766-00

PATIENT
  Age: 45 Year
  Sex: Female

DRUGS (18)
  1. TORSEMIDE [Concomitant]
     Indication: PRODUCT USED FOR UNKNOWN INDICATION
     Dosage: 1 QOD
     Dates: start: 19980101
  2. XANAX [Concomitant]
     Indication: PRODUCT USED FOR UNKNOWN INDICATION
     Dosage: 2 IN 1 DAY, FOR 1 YEAR
  3. FLUTICASONE PROPIONATE [Concomitant]
     Indication: PRODUCT USED FOR UNKNOWN INDICATION
     Dosage: FOR 1 YEAR
     Route: 045
  4. LATANOPROST [Concomitant]
     Indication: GLAUCOMA
     Dosage: 2 DROPS EACH EYE DAILY, FOR 8 YEARS
     Route: 047
  5. LIDOCAINE PRILOCAINE [Concomitant]
     Indication: PAIN
  6. LYRICA [Concomitant]
     Indication: PRODUCT USED FOR UNKNOWN INDICATION
     Dosage: TID, FOR AT LEAST 15 YEARS
  7. HUMIRA [Suspect]
     Indication: RHEUMATOID ARTHRITIS
     Dates: start: 20110521
  8. VERAPAMIL EX [Concomitant]
     Indication: PRODUCT USED FOR UNKNOWN INDICATION
     Dosage: DAILY
     Dates: start: 19980101
  9. ADVAIR DISKUS 100/50 [Concomitant]
     Indication: PRODUCT USED FOR UNKNOWN INDICATION
     Dosage: 250/50, 1 PUFF IN AM AND 1 PUFF IN PM
     Dates: start: 19930101
  10. COMPAZINE [Concomitant]
     Indication: PRODUCT USED FOR UNKNOWN INDICATION
     Dosage: THREE TIMES DAILY AS NEEDED
     Dates: start: 20090101
  11. EFFEXOR [Concomitant]
     Indication: HOT FLUSH
     Dosage: 1 IN 1 DAY, FOR 6 YEARS
  12. PRAVASTATIN [Concomitant]
     Indication: PRODUCT USED FOR UNKNOWN INDICATION
     Dosage: DAILY AT BEDTIME
  13. ALBUTEROL [Concomitant]
     Indication: PRODUCT USED FOR UNKNOWN INDICATION
     Dates: start: 19930101
  14. XYBUTYEIN [Concomitant]
     Indication: MICTURITION URGENCY
     Dosage: 2 IN 1 DAY, FOR 1 YEAR
  15. OXYCONTIN [Concomitant]
     Indication: PRODUCT USED FOR UNKNOWN INDICATION
     Dosage: 1 EVERY 8 HRS, FOR 4 MONTHS
  16. METHOTREXATE [Concomitant]
     Indication: PRODUCT USED FOR UNKNOWN INDICATION
  17. SOMA [Concomitant]
     Indication: PRODUCT USED FOR UNKNOWN INDICATION
     Dosage: 3-4 TIMES DAILY, FOR 1 YEAR
  18. PERCOCET [Concomitant]
     Indication: PRODUCT USED FOR UNKNOWN INDICATION
     Dosage: 10/325MG, 1 EVERY 6 HOURS AS NEEDED

REACTIONS (3)
  - FALL [None]
  - OEDEMA PERIPHERAL [None]
  - INJECTION SITE PAIN [None]
